FAERS Safety Report 18187121 (Version 1)
Quarter: 2020Q3

REPORT INFORMATION
  Report Type: Spontaneous
  Country: US (occurrence: US)
  Receive Date: 20200823
  Receipt Date: 20200823
  Transmission Date: 20201103
  Serious: No
  Sender: FDA-Public Use
  Company Number: None

PATIENT
  Age: 59 Year
  Sex: Female
  Weight: 76.48 kg

DRUGS (1)
  1. PREGABLIN 150MG [Suspect]
     Active Substance: PREGABALIN
     Indication: FIBROMYALGIA
     Route: 048
     Dates: start: 20200106

REACTIONS (3)
  - Product substitution issue [None]
  - Lethargy [None]
  - Treatment failure [None]

NARRATIVE: CASE EVENT DATE: 20200106
